FAERS Safety Report 9406059 (Version 2)
Quarter: 2014Q1

REPORT INFORMATION
  Report Type: Spontaneous
  Country: JP (occurrence: JP)
  Receive Date: 20130717
  Receipt Date: 20140101
  Transmission Date: 20141002
  Serious: Yes (Hospitalization, Other)
  Sender: FDA-Public Use
  Company Number: PHHY2013JP074512

PATIENT
  Age: 42 Year
  Sex: Female

DRUGS (3)
  1. CICLOSPORIN [Suspect]
     Indication: KIDNEY TRANSPLANT REJECTION
     Route: 048
     Dates: end: 200405
  2. AZATHIOPRINE [Concomitant]
     Indication: RENAL TRANSPLANT
     Route: 048
     Dates: end: 200406
  3. PREDNISOLONE [Concomitant]
     Indication: RENAL TRANSPLANT

REACTIONS (4)
  - Post transplant lymphoproliferative disorder [Recovered/Resolved]
  - Inflammatory bowel disease [Unknown]
  - Lymphoma [Recovered/Resolved]
  - Pyrexia [Unknown]
